FAERS Safety Report 7753582-6 (Version None)
Quarter: 2011Q3

REPORT INFORMATION
  Report Type: 
  Country: None (occurrence: None)
  Receive Date: 20110915
  Receipt Date: 20110913
  Transmission Date: 20111222
  Serious: Yes (Hospitalization)
  Sender: FDA-Public Use
  Company Number: US-GLAXOSMITHKLINE-A0893049A

PATIENT
  Age: 66 Year
  Sex: Male

DRUGS (1)
  1. AVANDIA [Suspect]
     Indication: DIABETES MELLITUS
     Route: 048
     Dates: start: 20060101, end: 20090301

REACTIONS (5)
  - MYOCARDIAL INFARCTION [None]
  - UPPER LIMB FRACTURE [None]
  - TREMOR [None]
  - FALL [None]
  - BALANCE DISORDER [None]
